FAERS Safety Report 4398666-8 (Version None)
Quarter: 2004Q3

REPORT INFORMATION
  Report Type: 
  Country: None (occurrence: None)
  Receive Date: 20040712
  Receipt Date: 20040630
  Transmission Date: 20050211
  Serious: Yes (Hospitalization)
  Sender: FDA-Public Use
  Company Number: RS004578-F

PATIENT
  Age: 85 Year
  Sex: Female

DRUGS (6)
  1. PARIET            (RABEPRAZOLE) [Suspect]
     Dosage: ORAL
     Route: 048
  2. ASPIRIN [Concomitant]
  3. ZYLORIC (ALLOUPURINOL) [Concomitant]
  4. IMOVANE (ZOPICLONE) [Concomitant]
  5. ARICEPT [Concomitant]
  6. ATHYMIL (MIANSERIN HYDROCHLORIDE) [Concomitant]

REACTIONS (3)
  - DIARRHOEA [None]
  - NEPHRITIS INTERSTITIAL [None]
  - RENAL FAILURE ACUTE [None]
